FAERS Safety Report 5514657-5 (Version None)
Quarter: 2007Q4

REPORT INFORMATION
  Report Type: 
  Country: None (occurrence: None)
  Receive Date: 20071113
  Receipt Date: 20071101
  Transmission Date: 20080405
  Serious: Yes (Other)
  Sender: FDA-Public Use
  Company Number: US-PFIZER INC-2007092549

PATIENT
  Sex: Female
  Weight: 63.5 kg

DRUGS (11)
  1. SOLU-MEDROL [Suspect]
     Route: 042
     Dates: start: 20070929, end: 20071003
  2. REBIF [Suspect]
     Indication: MULTIPLE SCLEROSIS
     Dosage: DAILY DOSE:44MCG
     Route: 058
  3. LANTUS [Suspect]
  4. LANTUS [Suspect]
     Dosage: DAILY DOSE:8I.U.
  5. METFORMIN HCL [Concomitant]
  6. ADDERALL 10 [Concomitant]
  7. AMBIEN [Concomitant]
  8. REGLAN [Concomitant]
  9. MIRTAZAPINE [Concomitant]
  10. WELLBUTRIN [Concomitant]
  11. TEMAZEPAM [Concomitant]

REACTIONS (4)
  - BLOOD GLUCOSE ABNORMAL [None]
  - HYPOGLYCAEMIC SEIZURE [None]
  - INJECTION SITE REACTION [None]
  - MULTIPLE SCLEROSIS RELAPSE [None]
